FAERS Safety Report 17770627 (Version 1)
Quarter: 2020Q2

REPORT INFORMATION
  Report Type: Spontaneous
  Country: NL (occurrence: NL)
  Receive Date: 20200512
  Receipt Date: 20200512
  Transmission Date: 20200714
  Serious: Yes (Other)
  Sender: FDA-Public Use
  Company Number: NVSC2020NL126311

PATIENT

DRUGS (1)
  1. NEORAL [Suspect]
     Active Substance: CYCLOSPORINE
     Indication: TRANSPLANTATION ASSOCIATED FOOD ALLERGY
     Dosage: UNK
     Route: 065
     Dates: start: 2003

REACTIONS (5)
  - Dementia [Unknown]
  - Diarrhoea [Unknown]
  - Wrong technique in product usage process [Unknown]
  - Food interaction [Unknown]
  - Dysphagia [Unknown]
